FAERS Safety Report 6028370-1 (Version None)
Quarter: 2009Q1

REPORT INFORMATION
  Report Type: 
  Country: None (occurrence: None)
  Receive Date: 20090106
  Receipt Date: 20081230
  Transmission Date: 20090719
  Serious: Yes (Other)
  Sender: FDA-Public Use
  Company Number: PHBS2008AU06732

PATIENT
  Age: 76 Year
  Sex: Female

DRUGS (4)
  1. OXPRENOLOL [Suspect]
     Dosage: 20 MG/DAY
  2. RALOXIFENE HCL [Suspect]
  3. RANITIDINE [Suspect]
     Dosage: 150 MG, BID
  4. EPIPEN [Suspect]

REACTIONS (7)
  - ACUTE CORONARY SYNDROME [None]
  - ANGIOEDEMA [None]
  - CHEST PAIN [None]
  - ELECTROCARDIOGRAM T WAVE INVERSION [None]
  - LEFT VENTRICULAR DYSFUNCTION [None]
  - STRESS CARDIOMYOPATHY [None]
  - URTICARIA [None]
